FAERS Safety Report 24747132 (Version 1)
Quarter: 2024Q4

REPORT INFORMATION
  Report Type: Spontaneous
  Country: HR (occurrence: HR)
  Receive Date: 20241218
  Receipt Date: 20241218
  Transmission Date: 20250115
  Serious: Yes (Other)
  Sender: TEVA
  Company Number: None

PATIENT
  Age: 16 Year
  Sex: Female
  Weight: 56 kg

DRUGS (3)
  1. IBUPROFEN [Suspect]
     Active Substance: IBUPROFEN
     Indication: Product used for unknown indication
     Dosage: 7-8 TBL IBUPROFEN 400 MG
     Route: 048
     Dates: start: 20241021, end: 20241021
  2. KETOPROFEN [Suspect]
     Active Substance: KETOPROFEN
     Indication: Product used for unknown indication
     Dosage: 7-8 TBL KETONAL 25 MG
     Route: 048
     Dates: start: 20241021, end: 20241021
  3. NAPROXEN SODIUM [Suspect]
     Active Substance: NAPROXEN SODIUM
     Indication: Product used for unknown indication
     Route: 048
     Dates: start: 20241021, end: 20241021

REACTIONS (5)
  - Suicide attempt [Unknown]
  - Chest discomfort [Unknown]
  - Intentional overdose [Unknown]
  - Vertigo [Unknown]
  - Chest pain [Unknown]

NARRATIVE: CASE EVENT DATE: 20241021
